FAERS Safety Report 18724246 (Version 1)
Quarter: 2021Q1

REPORT INFORMATION
  Report Type: Spontaneous
  Country: US (occurrence: US)
  Receive Date: 20210109
  Receipt Date: 20210109
  Transmission Date: 20210419
  Serious: Yes (Other)
  Sender: FDA-Public Use
  Company Number: None

PATIENT
  Age: 25 Year
  Sex: Male
  Weight: 70.2 kg

DRUGS (1)
  1. RISPERIDONE. [Suspect]
     Active Substance: RISPERIDONE
     Indication: BIPOLAR DISORDER
     Dosage: ??          QUANTITY:1 TABLET(S);?
     Route: 048
     Dates: start: 20210107, end: 20210108

REACTIONS (5)
  - Speech disorder [None]
  - Balance disorder [None]
  - Heart rate irregular [None]
  - Fall [None]
  - Deafness [None]

NARRATIVE: CASE EVENT DATE: 20210108
